FAERS Safety Report 6902880-4 (Version None)
Quarter: 2010Q3

REPORT INFORMATION
  Report Type: 
  Country: None (occurrence: None)
  Receive Date: 20100803
  Receipt Date: 20080623
  Transmission Date: 20110219
  Serious: No
  Sender: FDA-Public Use
  Company Number: US-PFIZER INC-2008053374

PATIENT
  Sex: Male

DRUGS (1)
  1. LYRICA [Suspect]
     Route: 048

REACTIONS (4)
  - AMNESIA [None]
  - DISTURBANCE IN ATTENTION [None]
  - DRY MOUTH [None]
  - WEIGHT INCREASED [None]
